FAERS Safety Report 8231818-5 (Version None)
Quarter: 2012Q1

REPORT INFORMATION
  Report Type: 
  Country: None (occurrence: None)
  Receive Date: 20120323
  Receipt Date: 20120316
  Transmission Date: 20120608
  Serious: Yes (Hospitalization)
  Sender: FDA-Public Use
  Company Number: FR-VERTEX PHARMACEUTICALS INC.-000000000000000062

PATIENT
  Age: 71 Year
  Sex: Male

DRUGS (6)
  1. PEGASYS [Concomitant]
     Dosage: DOSAGE FORM: INJECTION
     Route: 058
     Dates: start: 20110601, end: 20110801
  2. COPEGUS [Concomitant]
     Indication: HEPATITIS C
     Route: 048
     Dates: start: 20110318, end: 20110601
  3. PEGASYS [Concomitant]
     Indication: HEPATITIS C
     Dosage: DOSAGE FORM: INJECTION
     Route: 058
     Dates: start: 20110318, end: 20110601
  4. INCIVO (TELAPREVIR) [Suspect]
     Indication: HEPATITIS C
     Dosage: DOSAGE FORM: TABLET
     Route: 048
     Dates: start: 20110318, end: 20110603
  5. VIRAFERONPEG [Concomitant]
     Indication: HEPATITIS C
     Dates: start: 20110801, end: 20111003
  6. COPEGUS [Concomitant]
     Route: 048
     Dates: start: 20110701, end: 20111003

REACTIONS (8)
  - COGNITIVE DISORDER [None]
  - ANAEMIA [None]
  - TREMOR [None]
  - MEMORY IMPAIRMENT [None]
  - GAIT DISTURBANCE [None]
  - HERPES ZOSTER [None]
  - CONFUSIONAL STATE [None]
  - BLOOD CREATININE INCREASED [None]
